FAERS Safety Report 20988291 (Version 2)
Quarter: 2022Q3

REPORT INFORMATION
  Report Type: Report from Study
  Country: US (occurrence: US)
  Receive Date: 20220621
  Receipt Date: 20220704
  Transmission Date: 20221026
  Serious: Yes (Hospitalization, Other)
  Sender: FDA-Public Use
  Company Number: US-NOVARTISPH-NVSC2022US137740

PATIENT
  Sex: Female

DRUGS (1)
  1. ILARIS [Suspect]
     Active Substance: CANAKINUMAB
     Indication: Still^s disease
     Dosage: 300 MG, QMO
     Route: 058
     Dates: start: 202106

REACTIONS (20)
  - Pericardial effusion [Unknown]
  - Left ventricular failure [Unknown]
  - Dyspnoea [Unknown]
  - Neuropathy peripheral [Unknown]
  - Haemoglobin decreased [Unknown]
  - Feeling abnormal [Unknown]
  - Nausea [Unknown]
  - Spinal retrolisthesis [Unknown]
  - Raynaud^s phenomenon [Unknown]
  - Skin discolouration [Unknown]
  - Joint swelling [Unknown]
  - Hypokinesia [Unknown]
  - Paraesthesia [Unknown]
  - Dysstasia [Unknown]
  - Condition aggravated [Unknown]
  - Disturbance in attention [Unknown]
  - Musculoskeletal chest pain [Unknown]
  - Inflammation [Unknown]
  - Hepatic lesion [Unknown]
  - Fatigue [Unknown]
